FAERS Safety Report 22237295 (Version 18)
Quarter: 2024Q4

REPORT INFORMATION
  Report Type: Spontaneous
  Country: DE (occurrence: DE)
  Receive Date: 20230421
  Receipt Date: 20241224
  Transmission Date: 20250115
  Serious: Yes (Other)
  Sender: ROCHE
  Company Number: DE-ROCHE-3312105

PATIENT
  Age: 53 Year
  Sex: Male

DRUGS (2)
  1. OCREVUS [Suspect]
     Active Substance: OCRELIZUMAB
     Indication: Primary progressive multiple sclerosis
     Dosage: ONCE IN 6 MONTH : FIRST SECOND THIRS FOURTH FIFTH AND 8 TH ADMINISTRATION
     Route: 065
     Dates: start: 2018
  2. CORTISONE [Suspect]
     Active Substance: CORTISONE
     Indication: Product used for unknown indication
     Route: 065

REACTIONS (19)
  - B-lymphocyte count decreased [Unknown]
  - Blood glucose increased [Unknown]
  - White blood cell count decreased [Unknown]
  - Gait disturbance [Not Recovered/Not Resolved]
  - Multiple sclerosis [Not Recovered/Not Resolved]
  - Asthenia [Not Recovered/Not Resolved]
  - Disability [Unknown]
  - Paraesthesia [Unknown]
  - Drug ineffective [Unknown]
  - Muscular weakness [Unknown]
  - Atonic urinary bladder [Unknown]
  - Defaecation disorder [Unknown]
  - Coronavirus infection [Unknown]
  - Nasopharyngitis [Not Recovered/Not Resolved]
  - Pyrexia [Recovered/Resolved]
  - Urinary tract infection [Unknown]
  - Insomnia [Unknown]
  - Anal incontinence [Unknown]
  - Dizziness [Unknown]

NARRATIVE: CASE EVENT DATE: 20231201
